FAERS Safety Report 10252305 (Version 2)
Quarter: 2014Q2

REPORT INFORMATION
  Report Type: Spontaneous
  Country: US (occurrence: US)
  Receive Date: 20140623
  Receipt Date: 20140623
  Transmission Date: 20141212
  Serious: Yes (Other)
  Sender: FDA-Public Use
  Company Number: PHEH2014US008465

PATIENT
  Age: 14 Year
  Sex: Male
  Weight: 61.68 kg

DRUGS (2)
  1. FOCALIN XR [Suspect]
     Indication: ATTENTION DEFICIT/HYPERACTIVITY DISORDER
     Dosage: 05 MG, QD (IN MORNING)
     Route: 048
     Dates: start: 20140415, end: 20140415
  2. HERBAL PREPARATION [Concomitant]
     Dosage: UNK UKN, UNK

REACTIONS (8)
  - Musculoskeletal stiffness [Recovered/Resolved]
  - Gait disturbance [Recovered/Resolved]
  - Feeling abnormal [Recovered/Resolved]
  - Dystonia [Recovered/Resolved]
  - Dyskinesia [Recovered/Resolved]
  - Tic [Recovered/Resolved]
  - Headache [Recovered/Resolved]
  - Drug effect decreased [Recovered/Resolved]
